FAERS Safety Report 6257629-8 (Version None)
Quarter: 2009Q3

REPORT INFORMATION
  Report Type: 
  Country: None (occurrence: None)
  Receive Date: 20090706
  Receipt Date: 20090122
  Transmission Date: 20100115
  Serious: Yes (Hospitalization)
  Sender: FDA-Public Use
  Company Number: CH-SANOFI-SYNTHELABO-A01200900703

PATIENT
  Age: 82 Year
  Sex: Male
  Weight: 78 kg

DRUGS (10)
  1. NEXIUM [Concomitant]
     Indication: DRUG USE FOR UNKNOWN INDICATION
     Route: 048
  2. NEXIUM [Concomitant]
     Route: 041
     Dates: start: 20080731, end: 20080806
  3. CRESTOR [Concomitant]
     Indication: HYPERLIPIDAEMIA
     Route: 048
     Dates: end: 20080807
  4. ARICEPT [Concomitant]
     Indication: DEMENTIA
     Route: 048
     Dates: end: 20080823
  5. ZOLPIDEM [Concomitant]
     Indication: DRUG USE FOR UNKNOWN INDICATION
     Route: 048
  6. BILOL [Concomitant]
     Indication: DRUG USE FOR UNKNOWN INDICATION
     Route: 048
  7. ASPIRIN [Interacting]
     Indication: MYOCARDIAL ISCHAEMIA
     Route: 048
     Dates: end: 20080806
  8. MARCUMAR [Interacting]
     Indication: EMBOLISM VENOUS
     Route: 048
     Dates: start: 20080625, end: 20080804
  9. PLAVIX [Suspect]
     Indication: MYOCARDIAL ISCHAEMIA
     Route: 048
     Dates: start: 20080603
  10. PLAVIX [Interacting]
     Indication: CORONARY ANGIOPLASTY
     Route: 048
     Dates: start: 20080603

REACTIONS (5)
  - ANAEMIA [None]
  - DRUG INTERACTION [None]
  - GASTROINTESTINAL HAEMORRHAGE [None]
  - INTERNATIONAL NORMALISED RATIO INCREASED [None]
  - MELAENA [None]
